FAERS Safety Report 24266567 (Version 1)
Quarter: 2024Q3

REPORT INFORMATION
  Report Type: Spontaneous
  Country: US (occurrence: None)
  Receive Date: 20240830
  Receipt Date: 20240830
  Transmission Date: 20241017
  Serious: Yes (Hospitalization)
  Sender: ASTRAZENECA
  Company Number: 2024A192495

PATIENT
  Sex: Male

DRUGS (1)
  1. FARXIGA [Suspect]
     Active Substance: DAPAGLIFLOZIN PROPANEDIOL
     Route: 048

REACTIONS (6)
  - Necrotising fasciitis [Unknown]
  - Ulcer [Unknown]
  - Decreased activity [Unknown]
  - Hypokinesia [Unknown]
  - Bradykinesia [Unknown]
  - Haemorrhage [Unknown]
